FAERS Safety Report 7396120-2 (Version None)
Quarter: 2011Q2

REPORT INFORMATION
  Report Type: 
  Country: None (occurrence: None)
  Receive Date: 20110406
  Receipt Date: 20110325
  Transmission Date: 20111010
  Serious: Yes (Hospitalization)
  Sender: FDA-Public Use
  Company Number: IE-ELI_LILLY_AND_COMPANY-IE201103006843

PATIENT
  Sex: Female

DRUGS (7)
  1. INDERAL [Concomitant]
     Dosage: UNK, UNKNOWN
     Route: 065
  2. BURINEX [Concomitant]
     Dosage: UNK, UNKNOWN
     Route: 065
  3. IDEOS [Concomitant]
     Dosage: UNK, UNKNOWN
     Route: 065
  4. FORTEO [Suspect]
     Indication: OSTEOPOROSIS
     Dosage: 20 UG, UNKNOWN
     Route: 065
     Dates: start: 20110225
  5. ALDACTONE [Concomitant]
     Dosage: UNK, UNKNOWN
     Route: 065
  6. ESOMEPRAZOLE [Concomitant]
     Dosage: UNK, UNKNOWN
  7. WARFARIN SODIUM [Concomitant]
     Dosage: UNK, UNKNOWN
     Route: 065

REACTIONS (1)
  - URINARY TRACT INFECTION [None]
